FAERS Safety Report 7814765-X (Version None)
Quarter: 2011Q4

REPORT INFORMATION
  Report Type: 
  Country: None (occurrence: None)
  Receive Date: 20111014
  Receipt Date: 20111011
  Transmission Date: 20120403
  Serious: Yes (Life-Threatening, Hospitalization, Other)
  Sender: FDA-Public Use
  Company Number: US-JNJFOC-20111005385

PATIENT
  Age: 69 Year
  Sex: Male
  Weight: 55.34 kg

DRUGS (2)
  1. STELARA [Suspect]
     Route: 058
     Dates: start: 20101230
  2. STELARA [Suspect]
     Indication: PSORIATIC ARTHROPATHY
     Route: 058
     Dates: start: 20100330

REACTIONS (5)
  - PNEUMONIA [None]
  - CANDIDIASIS [None]
  - DYSPHAGIA [None]
  - OFF LABEL USE [None]
  - WEIGHT DECREASED [None]
